FAERS Safety Report 6466878-5 (Version None)
Quarter: 2009Q4

REPORT INFORMATION
  Report Type: 
  Country: None (occurrence: None)
  Receive Date: 20091127
  Receipt Date: 20091116
  Transmission Date: 20100525
  Serious: Yes (Other)
  Sender: FDA-Public Use
  Company Number: 2009AC000416

PATIENT
  Age: 51 Year
  Sex: Male

DRUGS (4)
  1. DIGOXIN [Suspect]
     Dosage: 250 MCG;QD;PO
     Route: 048
     Dates: start: 20080101
  2. COUMADIN [Concomitant]
  3. LASIX [Concomitant]
  4. SIMVASTATIN [Concomitant]

REACTIONS (8)
  - ANXIETY [None]
  - ATRIAL FIBRILLATION [None]
  - ECONOMIC PROBLEM [None]
  - FATIGUE [None]
  - INJURY [None]
  - MULTIPLE INJURIES [None]
  - OEDEMA PERIPHERAL [None]
  - PAIN [None]
